FAERS Safety Report 23804212 (Version 1)
Quarter: 2024Q2

REPORT INFORMATION
  Report Type: Report from Study
  Country: CA (occurrence: CA)
  Receive Date: 20240501
  Receipt Date: 20240501
  Transmission Date: 20240716
  Serious: Yes (Other)
  Sender: FDA-Public Use
  Company Number: CA-JNJFOC-20240386537

PATIENT
  Age: 51 Year
  Sex: Male

DRUGS (10)
  1. REMICADE [Suspect]
     Active Substance: INFLIXIMAB
     Indication: Crohn^s disease
     Route: 041
     Dates: start: 20200930
  2. URSODIOL [Concomitant]
     Active Substance: URSODIOL
  3. TACROLIMUS [Concomitant]
     Active Substance: TACROLIMUS
  4. PANTOPRAZOLE [Concomitant]
     Active Substance: PANTOPRAZOLE
  5. DICYCLOMINE HYDROCHLORIDE [Concomitant]
     Active Substance: DICYCLOMINE HYDROCHLORIDE
  6. BASAGLAR [Concomitant]
     Active Substance: INSULIN GLARGINE
  7. PREDNISONE [Concomitant]
     Active Substance: PREDNISONE
  8. NIFEDIPINE [Concomitant]
     Active Substance: NIFEDIPINE
  9. PROPRANOLOL [Concomitant]
     Active Substance: PROPRANOLOL HYDROCHLORIDE
  10. PROBIOTICS NOS [Concomitant]
     Active Substance: PROBIOTICS NOS

REACTIONS (3)
  - Crohn^s disease [Recovering/Resolving]
  - Ear inflammation [Recovering/Resolving]
  - Influenza [Unknown]
